FAERS Safety Report 15321530 (Version 2)
Quarter: 2018Q4

REPORT INFORMATION
  Report Type: Report from Study
  Country: ES (occurrence: ES)
  Receive Date: 20180827
  Receipt Date: 20181228
  Transmission Date: 20190204
  Serious: Yes (Death, Hospitalization)
  Sender: FDA-Public Use
  Company Number: ES-MYLANLABS-2018M1063688

PATIENT
  Age: 85 Year
  Sex: Female

DRUGS (9)
  1. PARACETAMOL [Suspect]
     Active Substance: ACETAMINOPHEN
     Indication: PRODUCT USED FOR UNKNOWN INDICATION
     Dosage: 1 G, Q8H
     Dates: start: 20170312, end: 20170314
  2. PREGABALINA [Concomitant]
     Active Substance: PREGABALIN
     Indication: PRODUCT USED FOR UNKNOWN INDICATION
     Dosage: 75 MG, BID
     Dates: start: 20170312, end: 20170313
  3. OMEPRAZOLE. [Suspect]
     Active Substance: OMEPRAZOLE
     Indication: PRODUCT USED FOR UNKNOWN INDICATION
     Dosage: 20 MG, QD(20 MG CADA 24 HORAS)
     Dates: start: 20170313, end: 20170314
  4. QUETIAPINA                         /01270901/ [Concomitant]
     Active Substance: QUETIAPINE
     Indication: PRODUCT USED FOR UNKNOWN INDICATION
     Dosage: 50 MG, BID(50 MG CADA 12 HORAS )
     Dates: start: 20170312, end: 20170313
  5. PIPERACILLIN/TAZOBACTAM [Suspect]
     Active Substance: PIPERACILLIN SODIUM\TAZOBACTAM SODIUM
     Dosage: 4 G, Q6H
     Dates: start: 20170312, end: 20170314
  6. RISPERIDONA [Concomitant]
     Active Substance: RISPERIDONE
     Indication: PRODUCT USED FOR UNKNOWN INDICATION
     Dosage: 0.5 MG, UNK SI PRECISA
     Dates: start: 20170312, end: 20170313
  7. BEMIPARIN [Concomitant]
     Active Substance: BEMIPARIN
     Indication: PRODUCT USED FOR UNKNOWN INDICATION
     Dosage: 7500 IU, QD
     Dates: start: 20170312, end: 20170313
  8. OLANZAPINE. [Suspect]
     Active Substance: OLANZAPINE
     Indication: PRODUCT USED FOR UNKNOWN INDICATION
     Dosage: 2,5 MG SI PRECISA
     Dates: start: 20170312, end: 20170314
  9. FENTANILO                          /00174601/ [Concomitant]
     Active Substance: FENTANYL
     Indication: PRODUCT USED FOR UNKNOWN INDICATION
     Dosage: 1 UNIDAD
     Route: 062
     Dates: start: 20170312, end: 20170316

REACTIONS (1)
  - Hepatic failure [Fatal]

NARRATIVE: CASE EVENT DATE: 20170313
